FAERS Safety Report 12325567 (Version 1)
Quarter: 2016Q2

REPORT INFORMATION
  Report Type: Spontaneous
  Country: FR (occurrence: FR)
  Receive Date: 20160503
  Receipt Date: 20160503
  Transmission Date: 20160815
  Serious: Yes (Hospitalization)
  Sender: FDA-Public Use
  Company Number: FR-ROCHE-1750008

PATIENT
  Age: 49 Year
  Sex: Female

DRUGS (8)
  1. CARBOPLATINE [Suspect]
     Active Substance: CARBOPLATIN
     Dosage: ON DAY 2
     Route: 065
     Dates: start: 20160405
  2. MABTHERA [Suspect]
     Active Substance: RITUXIMAB
     Dosage: 375 MG/M2 ON DAY1
     Route: 042
     Dates: start: 20160405
  3. ETOPOSIDE MYLAN [Suspect]
     Active Substance: ETOPOSIDE
     Indication: B-CELL LYMPHOMA
     Dosage: 100MG/M2, FROM DAY 1 TO 3
     Route: 065
     Dates: start: 20160315
  4. ETOPOSIDE MYLAN [Suspect]
     Active Substance: ETOPOSIDE
     Dosage: 100MG/M2, DAY 1 TO 3
     Route: 065
     Dates: start: 20160405
  5. IFOSFAMIDE EG [Suspect]
     Active Substance: IFOSFAMIDE
     Dosage: 5000MG/M2  ON SECOND DAY
     Route: 065
     Dates: start: 20160405
  6. MABTHERA [Suspect]
     Active Substance: RITUXIMAB
     Indication: B-CELL LYMPHOMA
     Dosage: 375MG/M2 ON DAY 3
     Route: 042
     Dates: start: 20160315
  7. IFOSFAMIDE EG [Suspect]
     Active Substance: IFOSFAMIDE
     Indication: B-CELL LYMPHOMA
     Dosage: 5000MG/M2  ON SECOND DAY
     Route: 042
     Dates: start: 20160315
  8. CARBOPLATINE [Suspect]
     Active Substance: CARBOPLATIN
     Indication: B-CELL LYMPHOMA
     Dosage: ON SECOND DAY
     Route: 042
     Dates: start: 20160315

REACTIONS (1)
  - Encephalopathy [Recovering/Resolving]

NARRATIVE: CASE EVENT DATE: 20160407
